FAERS Safety Report 18422763 (Version 1)
Quarter: 2020Q4

REPORT INFORMATION
  Report Type: Spontaneous
  Country: CA (occurrence: CA)
  Receive Date: 20201023
  Receipt Date: 20201023
  Transmission Date: 20210114
  Serious: Yes (Other)
  Sender: FDA-Public Use
  Company Number: CA-JNJFOC-20201025307

PATIENT
  Age: 28 Year
  Sex: Female

DRUGS (7)
  1. BUDESONIDE. [Concomitant]
     Active Substance: BUDESONIDE
     Route: 048
  2. HYDROCORTISONE. [Concomitant]
     Active Substance: HYDROCORTISONE
     Route: 065
  3. INFLIXIMAB, RECOMBINANT [Suspect]
     Active Substance: INFLIXIMAB
     Indication: COLITIS ULCERATIVE
     Route: 042
  4. INFLIXIMAB, RECOMBINANT [Suspect]
     Active Substance: INFLIXIMAB
     Route: 042
  5. ACETAMINOPHEN. [Concomitant]
     Active Substance: ACETAMINOPHEN
     Route: 065
  6. MESALAZINE [Concomitant]
     Active Substance: MESALAMINE
     Indication: ENEMA ADMINISTRATION
     Route: 054
  7. MEZAVANT [Concomitant]
     Active Substance: MESALAMINE
     Route: 048

REACTIONS (13)
  - Rectal haemorrhage [Unknown]
  - Nasopharyngitis [Unknown]
  - Joint swelling [Unknown]
  - Intentional product use issue [Unknown]
  - Blood pressure fluctuation [Unknown]
  - Cough [Unknown]
  - Condition aggravated [Unknown]
  - Headache [Unknown]
  - Rash erythematous [Unknown]
  - Rhinorrhoea [Unknown]
  - Off label use [Unknown]
  - Influenza like illness [Unknown]
  - Eye swelling [Unknown]
